FAERS Safety Report 9882627 (Version 1)
Quarter: 2014Q1

REPORT INFORMATION
  Report Type: Report from Study
  Country: FR (occurrence: FR)
  Receive Date: 20140207
  Receipt Date: 20140207
  Transmission Date: 20141002
  Serious: Yes (Other)
  Sender: FDA-Public Use
  Company Number: FR-CELGENEUS-056-21880-14014485

PATIENT
  Age: 81 Year
  Sex: Female
  Weight: 62 kg

DRUGS (1)
  1. REVLIMID [Suspect]
     Indication: B-CELL LYMPHOMA
     Route: 048
     Dates: start: 20121019, end: 20130201

REACTIONS (1)
  - Uveitis [Recovered/Resolved]
